FAERS Safety Report 25606596 (Version 2)
Quarter: 2025Q3

REPORT INFORMATION
  Report Type: Other
  Country: GB (occurrence: GB)
  Receive Date: 20250725
  Receipt Date: 20250811
  Transmission Date: 20251020
  Serious: Yes (Disabling, Other)
  Sender: GLENMARK
  Company Number: None

PATIENT
  Age: 18 Year
  Sex: Male
  Weight: 7 kg

DRUGS (1)
  1. MONTELUKAST SODIUM [Suspect]
     Active Substance: MONTELUKAST SODIUM
     Indication: Asthma
     Route: 065
     Dates: start: 20241222

REACTIONS (9)
  - Cluster headache [Recovering/Resolving]
  - Body dysmorphic disorder [Recovering/Resolving]
  - Anger [Recovering/Resolving]
  - Tearfulness [Recovering/Resolving]
  - Frustration tolerance decreased [Recovering/Resolving]
  - Dysphemia [Recovering/Resolving]
  - Suicide threat [Recovering/Resolving]
  - Anxiety [Recovering/Resolving]
  - Hallucination [Recovering/Resolving]

NARRATIVE: CASE EVENT DATE: 20250101
